FAERS Safety Report 9925500 (Version 7)
Quarter: 2014Q4

REPORT INFORMATION
  Report Type: Report from Study
  Country: US (occurrence: US)
  Receive Date: 20140226
  Receipt Date: 20141226
  Transmission Date: 20150529
  Serious: Yes (Hospitalization, Other)
  Sender: FDA-Public Use
  Company Number: US-ALEXION PHARMACEUTICALS INC.-A201400080

PATIENT

DRUGS (4)
  1. SOLIRIS [Suspect]
     Active Substance: ECULIZUMAB
     Indication: PAROXYSMAL NOCTURNAL HAEMOGLOBINURIA
     Dosage: 1500 MG, Q2W
     Route: 042
     Dates: start: 20100820
  2. PREVACID [Concomitant]
     Active Substance: LANSOPRAZOLE
     Indication: PRODUCT USED FOR UNKNOWN INDICATION
     Dosage: QD, UNK
     Route: 065
     Dates: start: 20130802
  3. SOLIRIS [Suspect]
     Active Substance: ECULIZUMAB
     Dosage: 600 MG, QW
     Route: 042
     Dates: start: 20100820
  4. FOLIC ACID. [Concomitant]
     Active Substance: FOLIC ACID
     Indication: PRODUCT USED FOR UNKNOWN INDICATION
     Dosage: UNK, QD
     Route: 065
     Dates: start: 20100630

REACTIONS (20)
  - Haemolysis [Unknown]
  - Fatigue [Unknown]
  - Haemoglobin decreased [Unknown]
  - Chromaturia [Unknown]
  - Dysphagia [Unknown]
  - Haemolysis [Not Recovered/Not Resolved]
  - Asthenia [Unknown]
  - Headache [Unknown]
  - Eye infection [Unknown]
  - Haemoglobin decreased [Recovering/Resolving]
  - Pyrexia [Recovering/Resolving]
  - Haemolysis [Not Recovered/Not Resolved]
  - Haemolysis [Not Recovered/Not Resolved]
  - Viral infection [Unknown]
  - Influenza [Recovering/Resolving]
  - Haemoglobin decreased [Unknown]
  - Transfusion [Unknown]
  - Haemoglobin decreased [Unknown]
  - Neck pain [Unknown]
  - Dyspnoea [Unknown]

NARRATIVE: CASE EVENT DATE: 20140104
